FAERS Safety Report 15319721 (Version 4)
Quarter: 2019Q1

REPORT INFORMATION
  Report Type: Report from Study
  Country: None (occurrence: US)
  Receive Date: 20180827
  Receipt Date: 20190214
  Transmission Date: 20190417
  Serious: Yes (Hospitalization, Other)
  Sender: FDA-Public Use
  Company Number: US-ABBVIE-18K-163-2463409-00

PATIENT
  Age: 62 Year
  Sex: Male

DRUGS (1)
  1. HUMIRA [Suspect]
     Active Substance: ADALIMUMAB
     Indication: PSORIASIS
     Route: 058

REACTIONS (15)
  - Alopecia [Not Recovered/Not Resolved]
  - Hepatic infection [Unknown]
  - Psoriasis [Not Recovered/Not Resolved]
  - Polyp [Not Recovered/Not Resolved]
  - Nausea [Unknown]
  - Haematochezia [Not Recovered/Not Resolved]
  - Retching [Not Recovered/Not Resolved]
  - Anaemia [Not Recovered/Not Resolved]
  - Gastric haemorrhage [Recovered/Resolved]
  - Haemorrhage [Unknown]
  - Abdominal pain upper [Not Recovered/Not Resolved]
  - Back injury [Unknown]
  - Limb injury [Unknown]
  - Stress [Not Recovered/Not Resolved]
  - Fall [Unknown]

NARRATIVE: CASE EVENT DATE: 2017
